FAERS Safety Report 9585790 (Version 1)
Quarter: 2013Q4

REPORT INFORMATION
  Report Type: Spontaneous
  Country: GB (occurrence: None)
  Receive Date: 20131001
  Receipt Date: 20131001
  Transmission Date: 20140711
  Serious: Yes (Other)
  Sender: FDA-Public Use
  Company Number: GER/UKI/13/0034749

PATIENT
  Age: 37 Year
  Sex: Male

DRUGS (1)
  1. SILDENAFIL (SILDENAFIL) [Suspect]
     Indication: PRODUCT USED FOR UNKNOWN INDICATION
     Dosage: 50 MG, 1 IN 1 D
     Dates: start: 20130812

REACTIONS (1)
  - Chest pain [None]
